FAERS Safety Report 23723108 (Version 4)
Quarter: 2024Q3

REPORT INFORMATION
  Report Type: Spontaneous
  Country: US (occurrence: US)
  Receive Date: 20240409
  Receipt Date: 20240709
  Transmission Date: 20241017
  Serious: Yes (Other)
  Sender: BRISTOL MYERS SQUIBB
  Company Number: US-BRISTOL-MYERS SQUIBB COMPANY-2024-055767

PATIENT
  Age: 69 Year
  Sex: Female

DRUGS (3)
  1. LENALIDOMIDE [Suspect]
     Active Substance: LENALIDOMIDE
     Indication: Chemotherapy
     Dosage: TAKE 1 CAPSULE BY MOUTH EVERY DAY FOR 2 WEEKS ON FOLLOWED BY 1 WEEK OFF (21 DAY CYCLE)
     Route: 048
  2. LENALIDOMIDE [Suspect]
     Active Substance: LENALIDOMIDE
     Dosage: TAKE 1 CAPSULE BY MOUTH EVERY DAY FOR 2 WEEKS ON FOLLOWED BY 1 WEEK OFF (21 DAY CYCLE)
     Route: 048
  3. LENALIDOMIDE [Suspect]
     Active Substance: LENALIDOMIDE
     Dosage: TAKE 1 CAPSULE BY MOUTH DAILY FOR 14 DAYS FOLLOWED BY 7 DAYS OFF EVERY 21 DAYS
     Route: 048

REACTIONS (4)
  - Clostridium difficile infection [Not Recovered/Not Resolved]
  - Blood potassium decreased [Unknown]
  - Off label use [Unknown]
  - Dizziness [Not Recovered/Not Resolved]
